FAERS Safety Report 7070703-1 (Version None)
Quarter: 2010Q4

REPORT INFORMATION
  Report Type: 
  Country: None (occurrence: None)
  Receive Date: 20101027
  Receipt Date: 20101027
  Transmission Date: 20110411
  Serious: Yes (Other)
  Sender: FDA-Public Use
  Company Number: None

PATIENT
  Age: 38 Year
  Sex: Female
  Weight: 68.0396 kg

DRUGS (1)
  1. PROPYLTHIOURACIL [Suspect]
     Indication: HYPERTHYROIDISM
     Dosage: TWO TABLETS TWICE A DAY PO
     Route: 048
     Dates: start: 20100820, end: 20101013

REACTIONS (2)
  - ARTHRALGIA [None]
  - JOINT SWELLING [None]
